FAERS Safety Report 24427771 (Version 4)
Quarter: 2025Q4

REPORT INFORMATION
  Report Type: Report from Study
  Country: CA (occurrence: CA)
  Receive Date: 20241011
  Receipt Date: 20251020
  Transmission Date: 20260118
  Serious: Yes (Hospitalization, Other)
  Sender: PFIZER
  Company Number: CA-PFIZER INC-202400273523

PATIENT
  Age: 48 Year
  Sex: Male
  Weight: 64 kg

DRUGS (69)
  1. METHYLPREDNISOLONE SODIUM SUCCINATE [Suspect]
     Active Substance: METHYLPREDNISOLONE SODIUM SUCCINATE
     Route: 065
  2. REPLAGAL [Suspect]
     Active Substance: AGALSIDASE ALFA
     Indication: Fabry^s disease
     Dosage: 5 DF, EVERY 2 WEEKS
     Route: 050
  3. REPLAGAL [Suspect]
     Active Substance: AGALSIDASE ALFA
     Dosage: 5 DF, EVERY 2 WEEKS
     Route: 050
  4. REPLAGAL [Suspect]
     Active Substance: AGALSIDASE ALFA
     Dosage: 5 DF, EVERY 2 WEEKS
     Route: 050
  5. REPLAGAL [Suspect]
     Active Substance: AGALSIDASE ALFA
     Dosage: 5 DF, EVERY 2 WEEKS
     Route: 050
  6. REPLAGAL [Suspect]
     Active Substance: AGALSIDASE ALFA
     Dosage: 17.5 MG
     Route: 050
  7. REPLAGAL [Suspect]
     Active Substance: AGALSIDASE ALFA
     Dosage: 17.5 MG, 1 EVERY 2 WEEKS
     Route: 050
  8. REPLAGAL [Suspect]
     Active Substance: AGALSIDASE ALFA
     Dosage: 17.5 MG, 1 EVERY 2 WEEKS
     Route: 050
  9. REPLAGAL [Suspect]
     Active Substance: AGALSIDASE ALFA
     Dosage: 17.5 MG, 1 EVERY 2 WEEKS
     Route: 042
  10. REPLAGAL [Suspect]
     Active Substance: AGALSIDASE ALFA
     Dosage: 4 DF, EVERY 2 WEEKS
     Route: 050
  11. REPLAGAL [Suspect]
     Active Substance: AGALSIDASE ALFA
     Dosage: 14 MG, 1 EVERY 2 WEEKS
     Route: 050
  12. REPLAGAL [Suspect]
     Active Substance: AGALSIDASE ALFA
     Dosage: 4 DF, EVERY 2 WEEKS
     Route: 050
  13. REPLAGAL [Suspect]
     Active Substance: AGALSIDASE ALFA
     Dosage: 4 DF, EVERY 2 WEEKS
     Route: 050
  14. REPLAGAL [Suspect]
     Active Substance: AGALSIDASE ALFA
     Dosage: 14 MG, 1 EVERY 2 WEEKS
     Route: 050
  15. REPLAGAL [Suspect]
     Active Substance: AGALSIDASE ALFA
     Dosage: 14 MG, 1 EVERY 2 WEEKS
     Route: 050
  16. REPLAGAL [Suspect]
     Active Substance: AGALSIDASE ALFA
     Dosage: 14 MG, 1 EVERY 2 WEEKS
     Route: 050
  17. REPLAGAL [Suspect]
     Active Substance: AGALSIDASE ALFA
     Dosage: 14 MG, 1 EVERY 2 WEEKS
     Route: 042
  18. REPLAGAL [Suspect]
     Active Substance: AGALSIDASE ALFA
     Dosage: 4 DF, EVERY 2 WEEKS
     Route: 050
  19. REPLAGAL [Suspect]
     Active Substance: AGALSIDASE ALFA
     Dosage: 4 DF, EVERY 2 WEEKS
     Route: 050
  20. REPLAGAL [Suspect]
     Active Substance: AGALSIDASE ALFA
     Dosage: UNK, EVERY 2 WEEKS
     Route: 058
  21. REPLAGAL [Suspect]
     Active Substance: AGALSIDASE ALFA
     Dosage: UNK, EVERY 2 WEEKS
     Route: 042
  22. REPLAGAL [Suspect]
     Active Substance: AGALSIDASE ALFA
     Dosage: 4 DF, EVERY 2 WEEKS
     Route: 050
  23. REPLAGAL [Suspect]
     Active Substance: AGALSIDASE ALFA
     Dosage: UNK, EVERY 2 WEEKS
     Route: 042
  24. REPLAGAL [Suspect]
     Active Substance: AGALSIDASE ALFA
     Dosage: 14 MG, 1 EVERY 2 WEEKS
     Route: 050
  25. REPLAGAL [Suspect]
     Active Substance: AGALSIDASE ALFA
     Dosage: 4 DF, EVERY 2 WEEKS
     Route: 050
  26. REPLAGAL [Suspect]
     Active Substance: AGALSIDASE ALFA
     Dosage: 14 MG, 1 EVERY 2 WEEKS
     Route: 050
  27. REPLAGAL [Suspect]
     Active Substance: AGALSIDASE ALFA
     Dosage: 4 DF, EVERY 2 WEEKS
     Route: 042
  28. REPLAGAL [Suspect]
     Active Substance: AGALSIDASE ALFA
     Dosage: 4 DF, EVERY 2 WEEKS
     Route: 042
  29. REPLAGAL [Suspect]
     Active Substance: AGALSIDASE ALFA
     Dosage: 4 DF, 1 EVERY 2 WEEKS
     Route: 050
  30. REPLAGAL [Suspect]
     Active Substance: AGALSIDASE ALFA
     Dosage: 5 DF, EVERY 2 WEEKS
     Route: 050
  31. REPLAGAL [Suspect]
     Active Substance: AGALSIDASE ALFA
     Dosage: 5 DF, EVERY 2 WEEKS
     Route: 050
  32. REPLAGAL [Suspect]
     Active Substance: AGALSIDASE ALFA
     Dosage: 5 DF, EVERY 2 WEEKS
     Route: 050
  33. REPLAGAL [Suspect]
     Active Substance: AGALSIDASE ALFA
     Dosage: 5 DF, EVERY 2 WEEKS
     Route: 050
  34. REPLAGAL [Suspect]
     Active Substance: AGALSIDASE ALFA
     Dosage: 5 DF, EVERY 2 WEEKS
     Route: 050
  35. REPLAGAL [Suspect]
     Active Substance: AGALSIDASE ALFA
     Dosage: 5 DF, EVERY 2 WEEKS
     Route: 050
  36. REPLAGAL [Suspect]
     Active Substance: AGALSIDASE ALFA
     Dosage: 5 DF, EVERY 2 WEEKS
     Route: 050
  37. REPLAGAL [Suspect]
     Active Substance: AGALSIDASE ALFA
     Dosage: 5 DF, EVERY 2 WEEKS
     Route: 050
  38. REPLAGAL [Suspect]
     Active Substance: AGALSIDASE ALFA
     Dosage: 5 DF, EVERY 2 WEEKS
     Route: 050
  39. REPLAGAL [Suspect]
     Active Substance: AGALSIDASE ALFA
     Dosage: 5 DF, EVERY 2 WEEKS
     Route: 050
  40. REPLAGAL [Suspect]
     Active Substance: AGALSIDASE ALFA
     Dosage: 5 DF, EVERY 2 WEEKS
     Route: 050
  41. REPLAGAL [Suspect]
     Active Substance: AGALSIDASE ALFA
     Dosage: 5 DF, EVERY 2 WEEKS
     Route: 050
  42. REPLAGAL [Suspect]
     Active Substance: AGALSIDASE ALFA
     Dosage: 5 DF, EVERY 2 WEEKS
     Route: 050
  43. REPLAGAL [Suspect]
     Active Substance: AGALSIDASE ALFA
     Dosage: 5 DF, EVERY 2 WEEKS
     Route: 050
  44. REPLAGAL [Suspect]
     Active Substance: AGALSIDASE ALFA
     Dosage: 5 DF, EVERY 2 WEEKS
     Route: 050
  45. REPLAGAL [Suspect]
     Active Substance: AGALSIDASE ALFA
     Dosage: 5 DF, 1 EVERY 2 WEEKS
     Route: 050
  46. REPLAGAL [Suspect]
     Active Substance: AGALSIDASE ALFA
     Dosage: 10.5 MG, 1 EVERY 2 WEEKS
     Route: 050
  47. REPLAGAL [Suspect]
     Active Substance: AGALSIDASE ALFA
     Dosage: 1 EVERY 2 WEEKS
     Route: 042
  48. REPLAGAL [Suspect]
     Active Substance: AGALSIDASE ALFA
     Dosage: 10.5 MG, 1 EVERY 2 WEEKS
     Route: 050
  49. REPLAGAL [Suspect]
     Active Substance: AGALSIDASE ALFA
     Dosage: 10.5 MG, 1 EVERY 2 WEEKS
     Route: 042
  50. REPLAGAL [Suspect]
     Active Substance: AGALSIDASE ALFA
     Dosage: 1 EVERY 2 WEEKS
     Route: 042
  51. REPLAGAL [Suspect]
     Active Substance: AGALSIDASE ALFA
     Dosage: 5 DF, 2X/WEEK (2 EVERY 1 WEEK)
     Route: 050
  52. AMLODIPINE BESYLATE [Concomitant]
     Active Substance: AMLODIPINE BESYLATE
     Route: 065
  53. AXID [ESOMEPRAZOLE MAGNESIUM] [Concomitant]
     Route: 065
  54. BUPRENORPHINE [Concomitant]
     Active Substance: BUPRENORPHINE
     Route: 065
  55. CLOPIDOGREL BISULFATE [Concomitant]
     Active Substance: CLOPIDOGREL BISULFATE
     Route: 065
  56. CYMBALTA [Concomitant]
     Active Substance: DULOXETINE HYDROCHLORIDE
     Route: 065
  57. FAMOTIDINE [Concomitant]
     Active Substance: FAMOTIDINE
     Dosage: 20 MG
     Route: 048
  58. FAMOTIDINE [Concomitant]
     Active Substance: FAMOTIDINE
     Dosage: 20 MG
     Route: 048
  59. FLOMAX [Concomitant]
     Active Substance: TAMSULOSIN HYDROCHLORIDE
     Route: 065
  60. GABAPENTIN [Concomitant]
     Active Substance: GABAPENTIN
     Dosage: 100 MG
     Route: 048
  61. LIPITOR [Concomitant]
     Active Substance: ATORVASTATIN CALCIUM
     Route: 065
  62. LYRICA [Concomitant]
     Active Substance: PREGABALIN
     Route: 065
  63. TRIMEBUTINE MALEATE [Concomitant]
     Active Substance: TRIMEBUTINE MALEATE
     Route: 065
  64. PREDNISONE [Concomitant]
     Active Substance: PREDNISONE
     Dosage: 5 MG
     Route: 048
  65. PREDNISONE [Concomitant]
     Active Substance: PREDNISONE
     Dosage: 5 MG
     Route: 048
  66. RAMIPRIL [Concomitant]
     Active Substance: RAMIPRIL
     Route: 065
  67. SOLU-CORTEF [Concomitant]
     Active Substance: HYDROCORTISONE SODIUM SUCCINATE
     Dosage: DOSAGE FORM: POWDER FOR SOLUTION INTRAMUSCULAR
     Route: 065
  68. SUBOXONE [Concomitant]
     Active Substance: BUPRENORPHINE HYDROCHLORIDE\NALOXONE HYDROCHLORIDE
     Dosage: 8 MG (DOSAGE FORM: FILM, SOLUBLE)
     Route: 048
  69. ZOPICLONE [Concomitant]
     Active Substance: ZOPICLONE
     Route: 065

REACTIONS (52)
  - Arthropathy [Not Recovered/Not Resolved]
  - Blood pressure increased [Not Recovered/Not Resolved]
  - COVID-19 [Not Recovered/Not Resolved]
  - Confusional state [Not Recovered/Not Resolved]
  - Headache [Not Recovered/Not Resolved]
  - Nausea [Not Recovered/Not Resolved]
  - Aortic valve disease [Not Recovered/Not Resolved]
  - Blood pressure decreased [Not Recovered/Not Resolved]
  - Blood pressure fluctuation [Not Recovered/Not Resolved]
  - Burning sensation [Not Recovered/Not Resolved]
  - Cardiac disorder [Not Recovered/Not Resolved]
  - Cardiac valve disease [Not Recovered/Not Resolved]
  - Chest pain [Not Recovered/Not Resolved]
  - Contusion [Not Recovered/Not Resolved]
  - Dysphagia [Not Recovered/Not Resolved]
  - Endocarditis [Not Recovered/Not Resolved]
  - Gait inability [Not Recovered/Not Resolved]
  - Heart rate decreased [Not Recovered/Not Resolved]
  - Heart rate increased [Not Recovered/Not Resolved]
  - Hypoaesthesia [Not Recovered/Not Resolved]
  - Inappropriate schedule of product administration [Not Recovered/Not Resolved]
  - Infusion related reaction [Not Recovered/Not Resolved]
  - Ligament sprain [Not Recovered/Not Resolved]
  - Pain [Not Recovered/Not Resolved]
  - Pain in extremity [Not Recovered/Not Resolved]
  - Post procedural complication [Not Recovered/Not Resolved]
  - Product prescribing error [Not Recovered/Not Resolved]
  - Pyrexia [Not Recovered/Not Resolved]
  - Renal disorder [Not Recovered/Not Resolved]
  - Sepsis [Not Recovered/Not Resolved]
  - Swelling [Not Recovered/Not Resolved]
  - Troponin increased [Not Recovered/Not Resolved]
  - Weight decreased [Not Recovered/Not Resolved]
  - Weight fluctuation [Not Recovered/Not Resolved]
  - Arthritis infective [Not Recovered/Not Resolved]
  - Fabry^s disease [Not Recovered/Not Resolved]
  - Flank pain [Not Recovered/Not Resolved]
  - Heart rate abnormal [Not Recovered/Not Resolved]
  - Infusion site extravasation [Not Recovered/Not Resolved]
  - Muscle spasms [Not Recovered/Not Resolved]
  - Procedural nausea [Not Recovered/Not Resolved]
  - Depressed mood [Not Recovered/Not Resolved]
  - Dysstasia [Not Recovered/Not Resolved]
  - Fall [Not Recovered/Not Resolved]
  - Fatigue [Not Recovered/Not Resolved]
  - Heart rate abnormal [Not Recovered/Not Resolved]
  - Hypersomnia [Not Recovered/Not Resolved]
  - Peripheral swelling [Not Recovered/Not Resolved]
  - Procedural pain [Not Recovered/Not Resolved]
  - Raynaud^s phenomenon [Not Recovered/Not Resolved]
  - Drug intolerance [Not Recovered/Not Resolved]
  - Incorrect drug administration rate [Not Recovered/Not Resolved]
